FAERS Safety Report 5874027-7 (Version None)
Quarter: 2008Q3

REPORT INFORMATION
  Report Type: 
  Country: None (occurrence: None)
  Receive Date: 20080829
  Receipt Date: 20080813
  Transmission Date: 20090109
  Serious: Yes (Other)
  Sender: FDA-Public Use
  Company Number: DE-1166880

PATIENT
  Age: 71 Year
  Sex: Female

DRUGS (2)
  1. AZOPT [Suspect]
     Indication: GLAUCOMA
     Dosage: BID [2] OPHTHALMIC
     Route: 047
     Dates: start: 20080601, end: 20080701
  2. TIMOLOL MALEATE [Suspect]
     Indication: GLAUCOMA
     Dosage: OPHTHALMIC
     Route: 047

REACTIONS (8)
  - ASTHENIA [None]
  - BRONCHITIS [None]
  - DYSGEUSIA [None]
  - EYE INFLAMMATION [None]
  - EYE IRRITATION [None]
  - HEADACHE [None]
  - NASAL CONGESTION [None]
  - SINUSITIS [None]
